FAERS Safety Report 14306843 (Version 4)
Quarter: 2018Q1

REPORT INFORMATION
  Report Type: Spontaneous
  Country: US (occurrence: US)
  Receive Date: 20171220
  Receipt Date: 20180327
  Transmission Date: 20180509
  Serious: Yes (Other)
  Sender: FDA-Public Use
  Company Number: US-INCYTE CORPORATION-2017IN010826

PATIENT

DRUGS (5)
  1. MULTIVITAMIN                       /07504101/ [Concomitant]
     Active Substance: VITAMINS
     Indication: PRODUCT USED FOR UNKNOWN INDICATION
     Dosage: 1 TAB DAILY
  2. JAKAFI [Suspect]
     Active Substance: RUXOLITINIB
     Dosage: 10 MG, BID
     Route: 048
     Dates: start: 20170503
  3. JAKAFI [Suspect]
     Active Substance: RUXOLITINIB
     Indication: MYELOFIBROSIS
     Dosage: 20 MG BID
     Route: 048
     Dates: start: 20170411, end: 20170502
  4. IBUPROFEN. [Concomitant]
     Active Substance: IBUPROFEN
     Indication: PRODUCT USED FOR UNKNOWN INDICATION
     Dosage: 400 MG BID
  5. LORATADINE. [Concomitant]
     Active Substance: LORATADINE
     Indication: PRODUCT USED FOR UNKNOWN INDICATION
     Dosage: 10 MG DAILY, PRN

REACTIONS (37)
  - Pyrexia [Recovered/Resolved]
  - Paranasal sinus discomfort [Unknown]
  - Night sweats [Recovered/Resolved]
  - Cough [Unknown]
  - Haematocrit decreased [Unknown]
  - Hypersomnia [Unknown]
  - Acute sinusitis [Unknown]
  - Arthralgia [Recovered/Resolved]
  - Red blood cell count decreased [Unknown]
  - Blood pressure increased [Recovered/Resolved]
  - Chills [Recovered/Resolved]
  - Increased tendency to bruise [Unknown]
  - Splenomegaly [Unknown]
  - Blood lactic acid increased [Recovering/Resolving]
  - Blood urea increased [Unknown]
  - Dyspnoea [Unknown]
  - Chest discomfort [Recovered/Resolved]
  - Decreased appetite [Recovered/Resolved]
  - Oropharyngeal pain [Unknown]
  - Dry throat [Unknown]
  - Nasopharyngitis [Unknown]
  - Blood creatinine increased [Unknown]
  - Fatigue [Unknown]
  - Nasal congestion [Unknown]
  - Rhinorrhoea [Unknown]
  - Musculoskeletal pain [Unknown]
  - Headache [Recovered/Resolved]
  - Pneumonia [Unknown]
  - Drug dose omission [Unknown]
  - Wheezing [Unknown]
  - Haemoptysis [Unknown]
  - Upper-airway cough syndrome [Unknown]
  - Pleuritic pain [Unknown]
  - Haemoglobin decreased [Recovered/Resolved]
  - Orthopnoea [Unknown]
  - Muscle spasms [Recovered/Resolved]
  - Cerumen impaction [Unknown]

NARRATIVE: CASE EVENT DATE: 2017
